FAERS Safety Report 20667598 (Version 2)
Quarter: 2022Q2

REPORT INFORMATION
  Report Type: Report from Study
  Country: US (occurrence: US)
  Receive Date: 20220404
  Receipt Date: 20220517
  Transmission Date: 20220721
  Serious: Yes (Other)
  Sender: FDA-Public Use
  Company Number: US-ABBVIE-21K-163-4186440-00

PATIENT
  Sex: Female

DRUGS (5)
  1. IMBRUVICA [Suspect]
     Active Substance: IBRUTINIB
     Indication: Waldenstrom^s macroglobulinaemia
     Route: 048
  2. IMBRUVICA [Suspect]
     Active Substance: IBRUTINIB
     Route: 048
     Dates: start: 202104
  3. IMBRUVICA [Suspect]
     Active Substance: IBRUTINIB
     Route: 048
     Dates: end: 20220301
  4. HYDROCODONE [Suspect]
     Active Substance: HYDROCODONE
     Indication: Product used for unknown indication
     Route: 065
  5. MODERNA COVID-19 VACCINE [Concomitant]
     Active Substance: ELASOMERAN
     Indication: COVID-19 immunisation
     Route: 030

REACTIONS (13)
  - Cerebrovascular accident [Recovering/Resolving]
  - Oesophageal operation [Unknown]
  - Hyperglycaemia [Recovered/Resolved]
  - Arthritis [Unknown]
  - Blood glucose increased [Unknown]
  - Rotator cuff syndrome [Unknown]
  - Infusion site pain [Unknown]
  - Adverse drug reaction [Unknown]
  - Limb injury [Unknown]
  - Nausea [Unknown]
  - Hypertension [Recovered/Resolved]
  - Ecchymosis [Recovered/Resolved]
  - Contusion [Unknown]
